FAERS Safety Report 23609385 (Version 2)
Quarter: 2024Q1

REPORT INFORMATION
  Report Type: Spontaneous
  Country: CA (occurrence: CA)
  Receive Date: 20240308
  Receipt Date: 20240312
  Transmission Date: 20240410
  Serious: Yes (Other)
  Sender: FDA-Public Use
  Company Number: CA-VIIV HEALTHCARE LIMITED-CA2022187170

PATIENT
  Age: 26 Year
  Sex: Male

DRUGS (8)
  1. RILPIVIRINE [Suspect]
     Active Substance: RILPIVIRINE
     Indication: HIV infection
     Dosage: UNK UNK, Z, 600MG/3ML CABOTEGRAVIR, 900MG/3ML RILPIVIRINE, EVERY 2 MONTHS
     Route: 030
     Dates: start: 20220720
  2. RILPIVIRINE [Suspect]
     Active Substance: RILPIVIRINE
     Dosage: UNK UNK, Q2M, 600MG/3ML CABOTEGRAVIR, 900MG/3ML RILPIVIRINE
     Route: 030
     Dates: start: 20220516
  3. RILPIVIRINE [Suspect]
     Active Substance: RILPIVIRINE
     Dosage: UNK UNK, Q2M, 600MG/3MI CABOTEGRAVIR, 900MG/3MI RILPIVIRINE
     Route: 030
     Dates: start: 20220516
  4. RILPIVIRINE [Suspect]
     Active Substance: RILPIVIRINE
     Dosage: UNK UNK, Q2M, 600MG/3MI CABOTEGRAVIR, 900MG/3MI RILPIVIRINE, EXPIRY DATE: 30-SEP-2025
     Route: 030
  5. CABOTEGRAVIR [Suspect]
     Active Substance: CABOTEGRAVIR
     Indication: HIV infection
     Dosage: UNK UNK, Z, 600MG/3ML CABOTEGRAVIR, 900MG/3ML RILPIVIRINE, EVERY 2 MONTHS
     Route: 030
     Dates: start: 20220720
  6. CABOTEGRAVIR [Suspect]
     Active Substance: CABOTEGRAVIR
     Dosage: UNK UNK, Q2M, 600MG/3ML CABOTEGRAVIR, 900MG/3ML RILPIVIRINE
     Route: 030
     Dates: start: 20220516
  7. CABOTEGRAVIR [Suspect]
     Active Substance: CABOTEGRAVIR
     Dosage: UNK UNK, Q2M, 600MG/3MI CABOTEGRAVIR, 900MG/3MI RILPIVIRINE
     Route: 030
     Dates: start: 20220516
  8. CABOTEGRAVIR [Suspect]
     Active Substance: CABOTEGRAVIR
     Dosage: UNK UNK, Q2M, 600MG/3MI CABOTEGRAVIR, 900MG/3MI RILPIVIRINE, EXPIRY DATE=30-SEP-2025
     Route: 030

REACTIONS (5)
  - Syphilis [Unknown]
  - Injection site pain [Unknown]
  - Chills [Unknown]
  - Piloerection [Unknown]
  - Pyrexia [Recovered/Resolved]

NARRATIVE: CASE EVENT DATE: 20220101
